FAERS Safety Report 18928242 (Version 2)
Quarter: 2021Q1

REPORT INFORMATION
  Report Type: Spontaneous
  Country: US (occurrence: US)
  Receive Date: 20210223
  Receipt Date: 20210304
  Transmission Date: 20210420
  Serious: Yes (Other)
  Sender: FDA-Public Use
  Company Number: US-PFIZER INC-2021161657

PATIENT
  Age: 77 Year
  Sex: Female

DRUGS (4)
  1. ENBREL [Suspect]
     Active Substance: ETANERCEPT
     Dosage: 25 MG
     Dates: start: 1999
  2. ENBREL [Suspect]
     Active Substance: ETANERCEPT
     Dosage: 25 MG
  3. ENBREL [Suspect]
     Active Substance: ETANERCEPT
     Dosage: 25 MILLIGRAM
     Route: 065
  4. ENBREL [Suspect]
     Active Substance: ETANERCEPT
     Dosage: 25 MILLIGRAM
     Route: 065

REACTIONS (7)
  - Visual impairment [Unknown]
  - Memory impairment [Unknown]
  - Device use error [Unknown]
  - Injury associated with device [Unknown]
  - Tremor [Unknown]
  - Drug dose omission by device [Unknown]
  - Arthralgia [Unknown]

NARRATIVE: CASE EVENT DATE: 2021
